APPROVED DRUG PRODUCT: AMINOPHYLLINE
Active Ingredient: AMINOPHYLLINE
Strength: 100MG
Dosage Form/Route: TABLET;ORAL
Application: A087500 | Product #001
Applicant: ROXANE LABORATORIES INC
Approved: Feb 9, 1982 | RLD: No | RS: No | Type: DISCN